FAERS Safety Report 8134530-6 (Version None)
Quarter: 2012Q1

REPORT INFORMATION
  Report Type: 
  Country: None (occurrence: None)
  Receive Date: 20120214
  Receipt Date: 20120202
  Transmission Date: 20120608
  Serious: Yes (Hospitalization)
  Sender: FDA-Public Use
  Company Number: US-UCBSA-050014

PATIENT
  Age: 24 Year
  Sex: Female
  Weight: 54.88 kg

DRUGS (2)
  1. CIMZIA [Suspect]
     Indication: CROHN'S DISEASE
     Route: 058
     Dates: start: 20111001
  2. CIMZIA [Suspect]
     Route: 058
     Dates: start: 20110919, end: 20110101

REACTIONS (2)
  - ANAL FISTULA [None]
  - SUBCUTANEOUS ABSCESS [None]
